FAERS Safety Report 5890869-6 (Version None)
Quarter: 2008Q3

REPORT INFORMATION
  Report Type: 
  Country: None (occurrence: None)
  Receive Date: 20080922
  Receipt Date: 20080912
  Transmission Date: 20090109
  Serious: Yes (Death, Other)
  Sender: FDA-Public Use
  Company Number: US-AVENTIS-200718323US

PATIENT
  Sex: Female
  Weight: 52 kg

DRUGS (15)
  1. KETEK [Suspect]
     Dosage: DOSE: UNK
     Dates: start: 20061213
  2. KETEK [Suspect]
     Dosage: DOSE: UNK
     Dates: start: 20061213
  3. PREDNISONE TAB [Concomitant]
     Dosage: DOSE: UNK
     Dates: start: 20061213
  4. PREDNISONE TAB [Concomitant]
     Dosage: DOSE: UNK
     Dates: start: 20061213
  5. NEBULIZER TREATMENTS [Concomitant]
     Dosage: DOSE: UNK
     Dates: start: 20061213
  6. NEBULIZER TREATMENTS [Concomitant]
     Dosage: DOSE: UNK
     Dates: start: 20061213
  7. PACERONE [Concomitant]
     Dosage: DOSE: UNK
  8. ACIPHEX [Concomitant]
     Dosage: DOSE: UNK
  9. POTASSIUM CHLORIDE [Concomitant]
     Dosage: DOSE: UNK
  10. TRICOR                             /00090101/ [Concomitant]
     Dosage: DOSE: UNK
  11. TOPROL-XL [Concomitant]
     Dosage: DOSE: UNK
  12. COUMADIN [Concomitant]
     Dosage: DOSE: UNK
  13. LASIX [Concomitant]
     Dosage: DOSE: UNK
  14. ADVAIR DISKUS 100/50 [Concomitant]
     Dosage: DOSE: 1 INHALATION DAILY
  15. XOPENEX [Concomitant]
     Dosage: DOSE: UNK

REACTIONS (4)
  - ASCITES [None]
  - DEATH [None]
  - INJURY [None]
  - LIVER FUNCTION TEST ABNORMAL [None]
